FAERS Safety Report 9121827 (Version 2)
Quarter: 2013Q1

REPORT INFORMATION
  Report Type: Spontaneous
  Country: FR (occurrence: FR)
  Receive Date: 20130227
  Receipt Date: 20130318
  Transmission Date: 20140127
  Serious: Yes (Other)
  Sender: FDA-Public Use
  Company Number: FR-ACCORD-016534

PATIENT
  Age: 61 Year
  Sex: Female

DRUGS (5)
  1. GEMCITABINE [Suspect]
     Indication: HEPATIC NEOPLASM
     Dosage: RECEIVED 12 COURSES.
  2. OXALIPLATIN [Suspect]
     Indication: HEPATIC NEOPLASM
     Dosage: RECEIVED 12 COURSES
  3. ROSUVASTATIN [Concomitant]
     Indication: DYSLIPIDAEMIA
  4. ATENOLOL [Concomitant]
     Indication: HYPERTENSION
  5. EZETIMIBE [Concomitant]
     Indication: DYSLIPIDAEMIA

REACTIONS (4)
  - Nodular regenerative hyperplasia [Unknown]
  - Splenomegaly [Recovered/Resolved]
  - Thrombocytopenia [Unknown]
  - Off label use [Unknown]
